FAERS Safety Report 6480964-5 (Version None)
Quarter: 2009Q4

REPORT INFORMATION
  Report Type: 
  Country: None (occurrence: None)
  Receive Date: 20091208
  Receipt Date: 20091205
  Transmission Date: 20100525
  Serious: Yes (Hospitalization)
  Sender: FDA-Public Use
  Company Number: US-B.I. PHARMACEUTICALS,INC./RIDGEFIELD-2009-BP-14066BP

PATIENT
  Sex: Female
  Weight: 88.5 kg

DRUGS (8)
  1. SPIRIVA [Suspect]
     Indication: CHRONIC OBSTRUCTIVE PULMONARY DISEASE
     Dosage: 18 MCG
     Route: 055
     Dates: start: 20070601, end: 20091101
  2. PRO-AIR [Concomitant]
     Indication: CHRONIC OBSTRUCTIVE PULMONARY DISEASE
     Dates: start: 20070601
  3. COUMADIN [Concomitant]
     Indication: CARDIAC DISORDER
     Dates: start: 20070601
  4. LOPRESSOR [Concomitant]
     Indication: CARDIAC DISORDER
     Dates: start: 20070601
  5. FLUID PILL [Concomitant]
     Indication: CARDIAC FAILURE CONGESTIVE
     Dates: start: 20070601
  6. FLUID PILL [Concomitant]
     Indication: PERICARDIAL EFFUSION
  7. A MEDICATION FOR GOUT [Concomitant]
     Indication: GOUT
     Dates: start: 20070601
  8. REQUIP [Concomitant]
     Indication: RESTLESS LEGS SYNDROME
     Dates: start: 20070601

REACTIONS (3)
  - ARTHROPATHY [None]
  - COUGH [None]
  - JOINT INJURY [None]
